FAERS Safety Report 5572239-3 (Version None)
Quarter: 2007Q4

REPORT INFORMATION
  Report Type: 
  Country: None (occurrence: None)
  Receive Date: 20071221
  Receipt Date: 20071212
  Transmission Date: 20080405
  Serious: Yes (Other)
  Sender: FDA-Public Use
  Company Number: PFIZER INC-2007104502

PATIENT
  Age: 4 Day
  Sex: Female

DRUGS (1)
  1. PROSTIN VR SOLUTION, STERILE [Suspect]
     Indication: CARDIOGENIC SHOCK
     Route: 042

REACTIONS (2)
  - BLOOD ALKALINE PHOSPHATASE INCREASED [None]
  - EXOSTOSIS [None]
